FAERS Safety Report 5711140-9 (Version None)
Quarter: 2008Q2

REPORT INFORMATION
  Report Type: 
  Country: None (occurrence: None)
  Receive Date: 20080421
  Receipt Date: 20080409
  Transmission Date: 20081010
  Serious: Yes (Disabling)
  Sender: FDA-Public Use
  Company Number: US-BAYER-200815464NA

PATIENT
  Age: 43 Year
  Sex: Female

DRUGS (3)
  1. CIPRO [Suspect]
     Indication: URINARY TRACT INFECTION
     Dosage: TOTAL DAILY DOSE: 500 MG  UNIT DOSE: 250 MG
     Route: 048
     Dates: start: 20080201, end: 20080202
  2. ACIPHEX [Concomitant]
  3. MEDROL [Concomitant]
     Route: 048
     Dates: start: 20080104, end: 20080109

REACTIONS (5)
  - ARTHRALGIA [None]
  - MUSCULOSKELETAL PAIN [None]
  - NECK PAIN [None]
  - PAIN IN EXTREMITY [None]
  - TENDON PAIN [None]
